FAERS Safety Report 9511173 (Version 1)
Quarter: 2013Q1

REPORT INFORMATION
  Report Type: Spontaneous
  Country: US (occurrence: None)
  Receive Date: 20130305
  Receipt Date: 20130305
  Transmission Date: 20140127
  Serious: Yes (Other)
  Sender: FDA-Public Use
  Company Number: 163-21880-12122487

PATIENT
  Age: 67 Year
  Sex: Female

DRUGS (11)
  1. REVLIMID (LENALIDOMIDE) (15  MILLIGRAM, CAPSULES) [Suspect]
     Indication: PLASMA CELL MYELOMA
     Dosage: 15 MG, 21 IN 21 D, PO
     Dates: start: 20110606, end: 2012
  2. COLACE(DOCUSATE SODIUM)(CAPSULES) [Concomitant]
  3. DEXAMETHASONE(DEXAMETHASONE)(TABLETS) [Concomitant]
  4. FENTANYL(FENTANYL)(UNKNOWN) [Concomitant]
  5. GRANISETRON HCL(GRANISETRON HYDROCHLORIDE)(UNKNOWN) [Concomitant]
  6. LOSARTAN POTASSIUM(LOSARTAN POTASSIUM)(UNKNOWN) [Concomitant]
  7. MIRALAX(MACROGOL)(POWDER) [Concomitant]
  8. OMEPRAZOLE(OMEPRAZOLE)(CAPSULES) [Concomitant]
  9. PROCHLORPERAZINE MALEATE(PROCHLORPERAZINE [Concomitant]
  10. MALEATE)(UNKNOWN) [Concomitant]
  11. TYLENOL WITH CODEINE(PANADEINE CO)(UNKNOWN) [Concomitant]

REACTIONS (3)
  - Fatigue [None]
  - Haematocrit decreased [None]
  - Haemoglobin decreased [None]
